FAERS Safety Report 10550298 (Version 3)
Quarter: 2018Q1

REPORT INFORMATION
  Report Type: Spontaneous
  Country: AR (occurrence: AR)
  Receive Date: 20141029
  Receipt Date: 20180228
  Transmission Date: 20180508
  Serious: Yes (Hospitalization, Other)
  Sender: FDA-Public Use
  Company Number: AR-AMGEN-ARGSP2014083134

PATIENT
  Age: 50 Year
  Sex: Female

DRUGS (2)
  1. ARTRAIT [Concomitant]
     Active Substance: METHOTREXATE SODIUM
     Dosage: UNK
     Dates: start: 201801
  2. ENBREL [Suspect]
     Active Substance: ETANERCEPT
     Indication: RHEUMATOID ARTHRITIS
     Dosage: 50 MG, WEEKLY
     Route: 065
     Dates: start: 20080401

REACTIONS (10)
  - Limb injury [Recovered/Resolved]
  - Drug dose omission [Unknown]
  - Device issue [Unknown]
  - Autoimmune thyroiditis [Recovered/Resolved]
  - Hand deformity [Unknown]
  - Pain in extremity [Unknown]
  - Atypical pneumonia [Recovered/Resolved]
  - Weight increased [Not Recovered/Not Resolved]
  - Pain [Unknown]
  - Coeliac disease [Not Recovered/Not Resolved]

NARRATIVE: CASE EVENT DATE: 2009
